FAERS Safety Report 8014334-5 (Version None)
Quarter: 2011Q4

REPORT INFORMATION
  Report Type: 
  Country: None (occurrence: None)
  Receive Date: 20111229
  Receipt Date: 20111221
  Transmission Date: 20120403
  Serious: Yes (Hospitalization, Other)
  Sender: FDA-Public Use
  Company Number: NL-ACTELION-A-CH2011-57529

PATIENT
  Sex: Female

DRUGS (1)
  1. TRACLEER [Suspect]
     Indication: SKIN ULCER
     Dosage: UNK
     Route: 048
     Dates: start: 20071001, end: 20110701

REACTIONS (4)
  - HEPATIC CIRRHOSIS [None]
  - FINGER AMPUTATION [None]
  - HAEMOGLOBIN DECREASED [None]
  - AUTOIMMUNE HEPATITIS [None]
